FAERS Safety Report 21454528 (Version 1)
Quarter: 2022Q4

REPORT INFORMATION
  Report Type: Spontaneous
  Country: US (occurrence: None)
  Receive Date: 20221013
  Receipt Date: 20221013
  Transmission Date: 20230113
  Serious: Yes (Hospitalization)
  Sender: FDA-Public Use
  Company Number: None

PATIENT
  Sex: Female

DRUGS (9)
  1. LENALIDOMIDE [Suspect]
     Active Substance: LENALIDOMIDE
     Indication: Plasma cell myeloma
     Dosage: 10 MG ORAL?TAKE 1 CAPSULE BY MOUTH DAILY ON DAYS 1-21 ON A 35 DAY CYCLE
     Route: 048
     Dates: start: 20220802, end: 202210
  2. LISINOPRIL [Concomitant]
     Active Substance: LISINOPRIL
  3. METOPROL TAR TAB [Concomitant]
  4. ROSUVASTATIN [Concomitant]
     Active Substance: ROSUVASTATIN
  5. SINGULAIR TAB [Concomitant]
  6. SYNTHROID TAB [Concomitant]
  7. VITAMIN D CAP [Concomitant]
  8. ZYRTEC ALLGY TAB [Concomitant]
  9. HYDRALAZINE TAB [Concomitant]

REACTIONS (1)
  - Adverse drug reaction [None]
